FAERS Safety Report 20921437 (Version 1)
Quarter: 2022Q2

REPORT INFORMATION
  Report Type: Report from Study
  Country: US (occurrence: US)
  Receive Date: 20220606
  Receipt Date: 20220606
  Transmission Date: 20220721
  Serious: Yes (Other)
  Sender: FDA-Public Use
  Company Number: US-JAZZ-2022-US-018472

PATIENT
  Age: 62 Year
  Sex: Female

DRUGS (10)
  1. XYREM [Suspect]
     Active Substance: SODIUM OXYBATE
     Indication: Narcolepsy
     Dosage: UNK
     Route: 048
     Dates: start: 200308
  2. ESTRACE [Concomitant]
     Active Substance: ESTRADIOL
     Dosage: 0000
     Dates: start: 20141105
  3. RESTASIS [Concomitant]
     Active Substance: CYCLOSPORINE
     Dosage: 0000
     Dates: start: 20140101
  4. CALCIUM\VITAMIN D [Concomitant]
     Active Substance: CALCIUM\VITAMIN D
     Dosage: 0000
     Dates: start: 20141105
  5. BIOTIN [Concomitant]
     Active Substance: BIOTIN
     Dosage: 0000
     Dates: start: 20141105
  6. COREG [Concomitant]
     Active Substance: CARVEDILOL
     Dosage: 0000
     Dates: start: 20150601
  7. LASIX [Concomitant]
     Active Substance: FUROSEMIDE
     Dosage: 0000
     Dates: start: 20150601
  8. KRILL OIL [Concomitant]
     Active Substance: DIETARY SUPPLEMENT\KRILL OIL
     Dosage: 0000
     Dates: start: 20150909
  9. NUVIGIL [Concomitant]
     Active Substance: ARMODAFINIL
     Dosage: 0000
     Dates: start: 20151101
  10. ALLEGRA ALLERGY [Concomitant]
     Active Substance: FEXOFENADINE HYDROCHLORIDE
     Dosage: 0000
     Dates: start: 20170201

REACTIONS (1)
  - Foot operation [Unknown]

NARRATIVE: CASE EVENT DATE: 20161205
